FAERS Safety Report 18438251 (Version 2)
Quarter: 2021Q1

REPORT INFORMATION
  Report Type: Spontaneous
  Country: RU (occurrence: RU)
  Receive Date: 20201028
  Receipt Date: 20210215
  Transmission Date: 20210419
  Serious: Yes (Other)
  Sender: FDA-Public Use
  Company Number: RU-BRISTOL-MYERS SQUIBB COMPANY-BMS-2020-088105

PATIENT
  Sex: Female
  Weight: 50 kg

DRUGS (4)
  1. BENDAMUSTINE [Concomitant]
     Active Substance: BENDAMUSTINE
     Indication: HODGKIN^S DISEASE
     Route: 065
  2. GEMZAR [Concomitant]
     Active Substance: GEMCITABINE HYDROCHLORIDE
     Indication: HODGKIN^S DISEASE
     Dosage: UNK
     Route: 065
  3. VINORELBINE [Concomitant]
     Active Substance: VINORELBINE TARTRATE
     Indication: HODGKIN^S DISEASE
     Dosage: UNK
     Route: 065
  4. NIVOLUMAB [Suspect]
     Active Substance: NIVOLUMAB
     Indication: HODGKIN^S DISEASE
     Dosage: 100 MILLIGRAM
     Route: 065
     Dates: start: 20201009

REACTIONS (7)
  - Skin discomfort [Unknown]
  - Burning sensation [Unknown]
  - Skin injury [Unknown]
  - Skin exfoliation [Unknown]
  - Petechiae [Unknown]
  - Prescribed underdose [Unknown]
  - Erythema [Unknown]

NARRATIVE: CASE EVENT DATE: 202010
